FAERS Safety Report 25483923 (Version 2)
Quarter: 2025Q3

REPORT INFORMATION
  Report Type: Spontaneous
  Country: EU (occurrence: EU)
  Receive Date: 20250626
  Receipt Date: 20250728
  Transmission Date: 20251021
  Serious: Yes (Other)
  Sender: PFIZER
  Company Number: None

PATIENT
  Age: 72 Year
  Sex: Male
  Weight: 94 kg

DRUGS (2)
  1. RITUXIMAB [Suspect]
     Active Substance: RITUXIMAB
     Indication: Non-Hodgkin^s lymphoma
     Dosage: 783.5 MG, 1X/DAY
     Route: 042
     Dates: start: 20250612, end: 20250612
  2. RITUXIMAB [Suspect]
     Active Substance: RITUXIMAB
     Dosage: 783.5 MG, 1X/DAY
     Route: 042
     Dates: start: 20250612, end: 20250612

REACTIONS (3)
  - Euphoric mood [Recovered/Resolved]
  - Dyspnoea [Recovered/Resolved]
  - Hypertension [Recovered/Resolved]

NARRATIVE: CASE EVENT DATE: 20250612
